FAERS Safety Report 23742390 (Version 1)
Quarter: 2024Q2

REPORT INFORMATION
  Report Type: Spontaneous
  Country: RU (occurrence: RU)
  Receive Date: 20240415
  Receipt Date: 20240415
  Transmission Date: 20240716
  Serious: Yes (Other)
  Sender: FDA-Public Use
  Company Number: RU-AMGEN-RUSSP2024071829

PATIENT
  Age: 47 Year
  Sex: Female

DRUGS (3)
  1. XGEVA [Suspect]
     Active Substance: DENOSUMAB
     Indication: Product used for unknown indication
     Dosage: 120 MILLIGRAM
     Route: 065
     Dates: start: 201612
  2. HERBALS\SPIRULINA [Concomitant]
     Active Substance: HERBALS\SPIRULINA
     Route: 065
  3. SQUALENE [Concomitant]
     Active Substance: SQUALENE
     Route: 065

REACTIONS (4)
  - Pulmonary fibrosis [Unknown]
  - Cyst [Unknown]
  - Varicose vein [Unknown]
  - Therapeutic response unexpected [Unknown]
